FAERS Safety Report 8575305-3 (Version None)
Quarter: 2012Q3

REPORT INFORMATION
  Report Type: 
  Country: None (occurrence: None)
  Receive Date: 20120807
  Receipt Date: 20120731
  Transmission Date: 20120928
  Serious: Yes (Other)
  Sender: FDA-Public Use
  Company Number: US-PFIZER INC-2012147807

PATIENT
  Age: 73 Year
  Sex: Female
  Weight: 66.667 kg

DRUGS (6)
  1. LISINOPRIL AND HYDROCHLOROTHIAZIDE [Concomitant]
     Indication: BLOOD PRESSURE ABNORMAL
     Dosage: 20/25 MG, DAILY
  2. CALCIUM [Concomitant]
     Indication: OSTEOPOROSIS
     Dosage: 1200 MG, DAILY
  3. LATANOPROST [Suspect]
     Dosage: 1 GTT, 1X/DAY AT BEDTIME
     Route: 047
  4. LATANOPROST [Suspect]
     Indication: GLAUCOMA
     Dosage: 1 GTT, 1X/DAY AT BEDTIME
     Route: 047
  5. CENTRUM [Concomitant]
     Indication: ROUTINE HEALTH MAINTENANCE
     Dosage: UNK, DAILY
     Route: 048
  6. FORTICAL [Concomitant]
     Indication: OSTEOPOROSIS
     Dosage: 1 SPRAY IN EACH NOSTRIL, DAILY
     Route: 045

REACTIONS (1)
  - DRUG INEFFECTIVE [None]
